FAERS Safety Report 14998281 (Version 1)
Quarter: 2018Q2

REPORT INFORMATION
  Report Type: Report from Study
  Country: JP (occurrence: JP)
  Receive Date: 20180611
  Receipt Date: 20180611
  Transmission Date: 20180711
  Serious: Yes (Death)
  Sender: FDA-Public Use
  Company Number: PHHO1995JP00002

PATIENT
  Sex: Male

DRUGS (27)
  1. SANDIMMUNE [Suspect]
     Active Substance: CYCLOSPORINE
     Dosage: 160 MG, BID
     Route: 048
     Dates: start: 19900321, end: 19900326
  2. SANDIMMUNE [Suspect]
     Active Substance: CYCLOSPORINE
     Dosage: 100 MG, BID
     Route: 048
     Dates: start: 19900530, end: 19910307
  3. IMURAN [Suspect]
     Active Substance: AZATHIOPRINE
     Indication: RENAL TRANSPLANT
     Dosage: 100 MG, QD
     Route: 048
     Dates: start: 19900124
  4. SANDIMMUNE [Suspect]
     Active Substance: CYCLOSPORINE
     Dosage: 200 MG, QD
     Route: 048
     Dates: start: 19900222, end: 19900222
  5. SANDIMMUNE [Suspect]
     Active Substance: CYCLOSPORINE
     Dosage: 190 MG, BID
     Route: 048
     Dates: start: 19900313, end: 19900313
  6. SANDIMMUNE [Suspect]
     Active Substance: CYCLOSPORINE
     Dosage: 180 MG, BID
     Route: 048
     Dates: start: 19900314, end: 19900319
  7. SANDIMMUNE [Suspect]
     Active Substance: CYCLOSPORINE
     Dosage: 170 MG, BID
     Route: 048
     Dates: start: 19900320, end: 19900320
  8. SANDIMMUNE [Suspect]
     Active Substance: CYCLOSPORINE
     Dosage: 145 MG, BID
     Route: 048
     Dates: start: 19900327, end: 19900327
  9. SANDIMMUNE [Suspect]
     Active Substance: CYCLOSPORINE
     Dosage: 130 MG, BID
     Route: 048
     Dates: start: 19900328, end: 19900403
  10. SANDIMMUNE [Suspect]
     Active Substance: CYCLOSPORINE
     Dosage: 110 MG, BID
     Route: 048
     Dates: start: 19900405, end: 19900528
  11. SANDIMMUNE [Suspect]
     Active Substance: CYCLOSPORINE
     Dosage: 90 MG, BID
     Route: 048
     Dates: start: 19910308, end: 19910308
  12. SANDIMMUNE [Suspect]
     Active Substance: CYCLOSPORINE
     Dosage: 62.5 MG, BID
     Route: 048
     Dates: start: 19950228, end: 19950228
  13. SANDIMMUNE [Suspect]
     Active Substance: CYCLOSPORINE
     Dosage: 50 MG, BID
     Route: 048
     Dates: start: 19950301, end: 19950306
  14. SANDIMMUN [Suspect]
     Active Substance: CYCLOSPORINE
     Indication: RENAL TRANSPLANT
     Route: 065
  15. SANDIMMUNE [Suspect]
     Active Substance: CYCLOSPORINE
     Dosage: 105 MG, BID
     Route: 048
     Dates: start: 19900529, end: 19900529
  16. SANDIMMUNE [Suspect]
     Active Substance: CYCLOSPORINE
     Dosage: 50 MG, QD
     Route: 048
     Dates: start: 19950307, end: 19950307
  17. IMURAN [Suspect]
     Active Substance: AZATHIOPRINE
     Dosage: 25 MG, QD
     Route: 048
     Dates: end: 19950307
  18. SOLU-MEDROL [Suspect]
     Active Substance: METHYLPREDNISOLONE SODIUM SUCCINATE
     Indication: PRODUCT USED FOR UNKNOWN INDICATION
     Dosage: 1000 MG, QD
     Route: 042
     Dates: start: 19900222
  19. PRESSIMMUNE [Suspect]
     Active Substance: EQUINE THYMOCYTE IMMUNE GLOBULIN
     Indication: RENAL TRANSPLANT
     Dosage: 1000 MG, QD
     Route: 042
     Dates: start: 19900222, end: 19900307
  20. SANDIMMUNE [Suspect]
     Active Substance: CYCLOSPORINE
     Dosage: 87.5 MG, BID
     Route: 048
     Dates: start: 19910911, end: 19911217
  21. SANDIMMUNE [Suspect]
     Active Substance: CYCLOSPORINE
     Indication: RENAL TRANSPLANT
     Dosage: 400 MG, QD
     Route: 048
     Dates: start: 19900221, end: 19900221
  22. SANDIMMUNE [Suspect]
     Active Substance: CYCLOSPORINE
     Dosage: 200 MG, BID
     Route: 048
     Dates: start: 19900223, end: 19900312
  23. SANDIMMUNE [Suspect]
     Active Substance: CYCLOSPORINE
     Dosage: 75 MG, BID
     Route: 048
     Dates: start: 19911218, end: 19950227
  24. MEDROL [Suspect]
     Active Substance: METHYLPREDNISOLONE
     Indication: RENAL TRANSPLANT
     Dosage: 60 MG, QD
     Route: 048
     Dates: start: 19900221
  25. SANDIMMUNE [Suspect]
     Active Substance: CYCLOSPORINE
     Dosage: 120 MG, BID
     Route: 048
     Dates: start: 19900404, end: 19900404
  26. SANDIMMUNE [Suspect]
     Active Substance: CYCLOSPORINE
     Dosage: 80 MG, BID
     Route: 048
     Dates: start: 19910309, end: 19910910
  27. MEDROL [Suspect]
     Active Substance: METHYLPREDNISOLONE
     Dosage: 4 MG, QD
     Route: 048
     Dates: end: 19950307

REACTIONS (1)
  - Acute myeloid leukaemia [Fatal]
